FAERS Safety Report 22907768 (Version 2)
Quarter: 2023Q4

REPORT INFORMATION
  Report Type: Spontaneous
  Country: US (occurrence: US)
  Receive Date: 20230905
  Receipt Date: 20231019
  Transmission Date: 20240110
  Serious: Yes (Death, Other)
  Sender: FDA-Public Use
  Company Number: US-PFIZER INC-202300292208

PATIENT
  Age: 88 Year
  Sex: Female
  Weight: 45.351 kg

DRUGS (1)
  1. VYNDAMAX [Suspect]
     Active Substance: TAFAMIDIS
     Indication: Cardiac amyloidosis
     Dosage: UNK

REACTIONS (3)
  - Dementia Alzheimer^s type [Fatal]
  - Dementia [Unknown]
  - Weight decreased [Unknown]
